FAERS Safety Report 6509015-0 (Version None)
Quarter: 2009Q4

REPORT INFORMATION
  Report Type: 
  Country: None (occurrence: None)
  Receive Date: 20091221
  Receipt Date: 20090909
  Transmission Date: 20100525
  Serious: No
  Sender: FDA-Public Use
  Company Number: US-ASTRAZENECA-2009SE12086

PATIENT
  Age: 62 Year
  Sex: Female
  Weight: 77.1 kg

DRUGS (5)
  1. CRESTOR [Suspect]
     Indication: BLOOD CHOLESTEROL INCREASED
     Route: 048
     Dates: start: 20090824
  2. TYLENOL W/ CODEINE [Concomitant]
     Indication: TOOTHACHE
  3. IBUPROFEN [Concomitant]
     Indication: TOOTHACHE
  4. TRIMTERINE [Concomitant]
  5. LISINOPRIL [Concomitant]

REACTIONS (7)
  - AGITATION [None]
  - ANXIETY [None]
  - CARDIAC FLUTTER [None]
  - FEELING ABNORMAL [None]
  - INSOMNIA [None]
  - IRRITABILITY [None]
  - PALPITATIONS [None]
